FAERS Safety Report 5341692-2 (Version None)
Quarter: 2007Q2

REPORT INFORMATION
  Report Type: 
  Country: None (occurrence: None)
  Receive Date: 20070530
  Receipt Date: 20070425
  Transmission Date: 20071010
  Serious: Yes (Other)
  Sender: FDA-Public Use
  Company Number: 6032953

PATIENT
  Age: 51 Year
  Sex: Female

DRUGS (1)
  1. PRAVASTATIN [Suspect]
     Indication: DRUG USE FOR UNKNOWN INDICATION

REACTIONS (1)
  - MONONEUROPATHY MULTIPLEX [None]
